FAERS Safety Report 9716309 (Version 1)
Quarter: 2013Q4

REPORT INFORMATION
  Report Type: Spontaneous
  Country: FR (occurrence: FR)
  Receive Date: 20131127
  Receipt Date: 20131127
  Transmission Date: 20140711
  Serious: Yes (Other)
  Sender: FDA-Public Use
  Company Number: FR-SA-2013SA123028

PATIENT
  Age: 79 Year
  Sex: Male

DRUGS (10)
  1. ARAVA [Suspect]
     Indication: RHEUMATOID ARTHRITIS
     Route: 048
     Dates: start: 2001, end: 20130828
  2. PREDNISONE [Concomitant]
     Indication: RHEUMATOID ARTHRITIS
     Dates: start: 2001, end: 20130920
  3. OMEPRAZOLE [Concomitant]
  4. DIAMICRON [Concomitant]
     Route: 048
  5. ZALDIAR [Concomitant]
     Dosage: 1-4 DF /DAY
     Route: 048
  6. BROMAZEPAM [Concomitant]
  7. SYMBICORT [Concomitant]
  8. BRONCHODUAL [Concomitant]
  9. SALBUTAMOL SULFATE [Concomitant]
  10. ATROVENT [Concomitant]

REACTIONS (2)
  - Cholestasis [Unknown]
  - Aspartate aminotransferase increased [Unknown]
